FAERS Safety Report 6134083-8 (Version None)
Quarter: 2009Q1

REPORT INFORMATION
  Report Type: 
  Country: None (occurrence: None)
  Receive Date: 20090326
  Receipt Date: 20090326
  Transmission Date: 20090719
  Serious: Yes (Hospitalization, Other)
  Sender: FDA-Public Use
  Company Number: PHHO2006BE03231

PATIENT
  Sex: Female
  Weight: 62 kg

DRUGS (3)
  1. CGS 20267 T30748+ [Suspect]
     Indication: BREAST CANCER
     Dosage: 2.5 MG, QD
     Route: 048
     Dates: start: 20010418
  2. RENITEC [Concomitant]
  3. LANOXIN [Concomitant]

REACTIONS (5)
  - DEEP VEIN THROMBOSIS [None]
  - FALL [None]
  - FRACTURE [None]
  - KNEE ARTHROPLASTY [None]
  - OSTEOPOROSIS [None]
